FAERS Safety Report 18512706 (Version 2)
Quarter: 2020Q4

REPORT INFORMATION
  Report Type: Spontaneous
  Country: US (occurrence: US)
  Receive Date: 20201117
  Receipt Date: 20201125
  Transmission Date: 20210114
  Serious: Yes (Other)
  Sender: FDA-Public Use
  Company Number: US-ALLERGAN-2043964US

PATIENT
  Sex: Female
  Weight: 59.87 kg

DRUGS (2)
  1. ZOLOFT [Suspect]
     Active Substance: SERTRALINE HYDROCHLORIDE
     Indication: PANIC ATTACK
     Dosage: 50 MG, QD
     Route: 048
     Dates: start: 201911
  2. LUMIGAN [Suspect]
     Active Substance: BIMATOPROST
     Indication: GLAUCOMA
     Dosage: UNK
     Route: 047
     Dates: start: 202002, end: 202002

REACTIONS (9)
  - Chalazion [Recovered/Resolved]
  - Visual impairment [Unknown]
  - Condition aggravated [Unknown]
  - Eye disorder [Not Recovered/Not Resolved]
  - Iridotomy [Recovered/Resolved]
  - Vision blurred [Not Recovered/Not Resolved]
  - Cataract operation [Recovered/Resolved]
  - Intraocular pressure increased [Unknown]
  - Drug ineffective [Unknown]

NARRATIVE: CASE EVENT DATE: 202006
